FAERS Safety Report 24024470 (Version 2)
Quarter: 2024Q3

REPORT INFORMATION
  Report Type: Report from Study
  Country: US (occurrence: US)
  Receive Date: 20240628
  Receipt Date: 20240710
  Transmission Date: 20241017
  Serious: No
  Sender: ROCHE
  Company Number: US-ROCHE-3465698

PATIENT
  Age: 70 Year
  Sex: Female
  Weight: 45.36 kg

DRUGS (2)
  1. ALECENSA [Suspect]
     Active Substance: ALECTINIB HYDROCHLORIDE
     Indication: Lung carcinoma cell type unspecified stage III
     Route: 065
     Dates: start: 20231102, end: 202311
  2. ALECENSA [Suspect]
     Active Substance: ALECTINIB HYDROCHLORIDE
     Dosage: 3 PILLS TWICE A DAY ?LAST TREATMENT DATE 13/NOV/2023, DEC/2023.
     Route: 065
     Dates: start: 202311

REACTIONS (5)
  - Weight increased [Unknown]
  - Joint swelling [Unknown]
  - Sunburn [Unknown]
  - Depressed mood [Unknown]
  - Malaise [Unknown]

NARRATIVE: CASE EVENT DATE: 20231101
